FAERS Safety Report 8343371-6 (Version None)
Quarter: 2012Q2

REPORT INFORMATION
  Report Type: 
  Country: None (occurrence: None)
  Receive Date: 20120508
  Receipt Date: 20120424
  Transmission Date: 20120825
  Serious: Yes (Disabling)
  Sender: FDA-Public Use
  Company Number: KR-BRISTOL-MYERS SQUIBB COMPANY-16575334

PATIENT
  Sex: Male

DRUGS (1)
  1. ABILIFY [Suspect]
     Route: 065
     Dates: start: 20050101

REACTIONS (1)
  - RETINITIS PIGMENTOSA [None]
